FAERS Safety Report 11637341 (Version 2)
Quarter: 2015Q4

REPORT INFORMATION
  Report Type: Spontaneous
  Country: TH (occurrence: TH)
  Receive Date: 20151016
  Receipt Date: 20151026
  Transmission Date: 20160304
  Serious: Yes (Death)
  Sender: FDA-Public Use
  Company Number: TH-ROCHE-1647444

PATIENT

DRUGS (2)
  1. ACTILYSE [Suspect]
     Active Substance: ALTEPLASE
     Dosage: REMAINING 90% AS A CONSTANT INFUSION OVER 60 MINUTES.
     Route: 042
  2. ACTILYSE [Suspect]
     Active Substance: ALTEPLASE
     Indication: ISCHAEMIC STROKE
     Dosage: WITH 10 PERCENT GIVEN AS A BOLUS
     Route: 040

REACTIONS (2)
  - Cardiac failure [Fatal]
  - Sepsis [Fatal]
